FAERS Safety Report 17857199 (Version 1)
Quarter: 2020Q2

REPORT INFORMATION
  Report Type: Spontaneous
  Country: None (occurrence: FI)
  Receive Date: 20200603
  Receipt Date: 20200603
  Transmission Date: 20200714
  Serious: Yes (Other)
  Sender: FDA-Public Use
  Company Number: FI-POPULATION COUNCIL, INC.-2085437

PATIENT
  Age: 28 Year
  Sex: Female

DRUGS (1)
  1. JADELLE [Suspect]
     Active Substance: LEVONORGESTREL
     Indication: CONTRACEPTION
     Route: 059

REACTIONS (1)
  - Ectopic pregnancy under hormonal contraception [Unknown]

NARRATIVE: CASE EVENT DATE: 20200511
